FAERS Safety Report 9859007 (Version 1)
Quarter: 2014Q1

REPORT INFORMATION
  Report Type: Spontaneous
  Country: IS (occurrence: IS)
  Receive Date: 20140131
  Receipt Date: 20140131
  Transmission Date: 20141002
  Serious: Yes (Death, Hospitalization)
  Sender: FDA-Public Use
  Company Number: IS-PFIZER INC-2014029214

PATIENT
  Age: 83 Year
  Sex: Male

DRUGS (1)
  1. CONTALGIN [Suspect]

REACTIONS (2)
  - Wrong patient received medication [Fatal]
  - Overdose [Fatal]
